FAERS Safety Report 15725627 (Version 1)
Quarter: 2018Q4

REPORT INFORMATION
  Report Type: Spontaneous
  Country: US (occurrence: US)
  Receive Date: 20181215
  Receipt Date: 20181215
  Transmission Date: 20190205
  Serious: No
  Sender: FDA-Public Use
  Company Number: US-009507513-1812USA000109

PATIENT
  Age: 37 Year
  Sex: Female

DRUGS (1)
  1. NEXPLANON [Suspect]
     Active Substance: ETONOGESTREL
     Indication: CONTRACEPTION
     Dosage: I IMPLANT EVERY 3 YEARS
     Route: 059
     Dates: start: 20181126, end: 20181129

REACTIONS (4)
  - Implant site erythema [Unknown]
  - Implant site pain [Unknown]
  - Implant site bruising [Unknown]
  - Implant site swelling [Unknown]

NARRATIVE: CASE EVENT DATE: 201811
